FAERS Safety Report 7520537-6 (Version None)
Quarter: 2011Q2

REPORT INFORMATION
  Report Type: 
  Country: None (occurrence: None)
  Receive Date: 20110602
  Receipt Date: 20110523
  Transmission Date: 20111010
  Serious: Yes (Other)
  Sender: FDA-Public Use
  Company Number: US-ELI_LILLY_AND_COMPANY-US201104008133

PATIENT
  Sex: Female
  Weight: 97.052 kg

DRUGS (2)
  1. HUMALOG MIX 75/25 [Suspect]
     Indication: TYPE 1 DIABETES MELLITUS
     Dosage: UNK, PRN
  2. HUMULIN 70/30 [Suspect]
     Dosage: UNK, UNKNOWN

REACTIONS (4)
  - RETINAL DETACHMENT [None]
  - BLOOD GLUCOSE DECREASED [None]
  - BLINDNESS [None]
  - BLOOD GLUCOSE INCREASED [None]
